FAERS Safety Report 17415856 (Version 1)
Quarter: 2020Q1

REPORT INFORMATION
  Report Type: Spontaneous
  Country: US (occurrence: US)
  Receive Date: 20200130
  Receipt Date: 20200130
  Transmission Date: 20200409
  Serious: No
  Sender: FDA-Public Use
  Company Number: None

PATIENT
  Age: 41 Year
  Sex: Male

DRUGS (2)
  1. TENOFOVIR 300MG [Concomitant]
     Active Substance: TENOFOVIR DISOPROXIL
  2. ENTECAVIR 1MG TAB (X30) [Suspect]
     Active Substance: ENTECAVIR
     Indication: HEPATITIS B
     Route: 048

REACTIONS (1)
  - Libido decreased [None]

NARRATIVE: CASE EVENT DATE: 20191229
